FAERS Safety Report 9776096 (Version 1)
Quarter: 2013Q4

REPORT INFORMATION
  Report Type: Spontaneous
  Country: FR (occurrence: None)
  Receive Date: 20131219
  Receipt Date: 20131219
  Transmission Date: 20140711
  Serious: Yes (Hospitalization)
  Sender: FDA-Public Use
  Company Number: 2065072

PATIENT
  Age: 78 Year
  Sex: Female

DRUGS (1)
  1. PACLITAXEL [Suspect]
     Indication: BRONCHIAL CARCINOMA
     Route: 042
     Dates: start: 20130528, end: 20130528

REACTIONS (3)
  - Hypersensitivity [None]
  - Respiratory distress [None]
  - Erythema [None]
